FAERS Safety Report 10654378 (Version 1)
Quarter: 2014Q4

REPORT INFORMATION
  Report Type: Other
  Country: IT (occurrence: IT)
  Receive Date: 20141216
  Receipt Date: 20141216
  Transmission Date: 20150529
  Serious: Yes (Hospitalization)
  Sender: FDA-Public Use
  Company Number: IT-SUN PHARMACEUTICAL INDUSTRIES LTD-2014SUN02831

PATIENT

DRUGS (3)
  1. OXALIPLATIN. [Suspect]
     Active Substance: OXALIPLATIN
     Indication: ADENOCARCINOMA
     Dosage: UNK
     Route: 042
  2. 1-U-D-5-DEOSSIRIBOFURANOSIL-5-FLUOROURACIL [Concomitant]
  3. FOLINIC ACID [Concomitant]
     Active Substance: LEUCOVORIN

REACTIONS (4)
  - Laryngospasm [Recovered/Resolved]
  - Paraesthesia [Recovered/Resolved]
  - Paraesthesia [None]
  - Hypertensive crisis [Recovered/Resolved]

NARRATIVE: CASE EVENT DATE: 20141111
